FAERS Safety Report 5399097-4 (Version None)
Quarter: 2007Q3

REPORT INFORMATION
  Report Type: 
  Country: None (occurrence: None)
  Receive Date: 20070727
  Receipt Date: 20061207
  Transmission Date: 20080115
  Serious: No
  Sender: FDA-Public Use
  Company Number: A0630778A

PATIENT
  Age: 44 Year
  Sex: Female

DRUGS (3)
  1. LOTRONEX [Suspect]
     Indication: IRRITABLE BOWEL SYNDROME
     Dosage: 1MG TWICE PER DAY
     Route: 048
  2. PREDNISONE TAB [Concomitant]
  3. PREMARIN [Concomitant]

REACTIONS (1)
  - DRUG INEFFECTIVE [None]
